FAERS Safety Report 15313856 (Version 1)
Quarter: 2018Q3

REPORT INFORMATION
  Report Type: Report from Study
  Country: US (occurrence: US)
  Receive Date: 20180824
  Receipt Date: 20180824
  Transmission Date: 20181010
  Serious: Yes (Other)
  Sender: FDA-Public Use
  Company Number: US-ASTRAZENECA-2018SE62624

PATIENT
  Age: 638 Month
  Sex: Male
  Weight: 145.2 kg

DRUGS (1)
  1. BYDUREON [Suspect]
     Active Substance: EXENATIDE
     Indication: TYPE 2 DIABETES MELLITUS
     Route: 058
     Dates: start: 20160913

REACTIONS (6)
  - Drug dose omission [Not Recovered/Not Resolved]
  - Glycosylated haemoglobin increased [Unknown]
  - Device failure [Unknown]
  - Device failure [Unknown]
  - Blood glucose increased [Recovering/Resolving]
  - Device malfunction [Unknown]

NARRATIVE: CASE EVENT DATE: 201804
